FAERS Safety Report 9859858 (Version 1)
Quarter: 2014Q1

REPORT INFORMATION
  Report Type: Spontaneous
  Country: IT (occurrence: IT)
  Receive Date: 20140131
  Receipt Date: 20140131
  Transmission Date: 20141002
  Serious: Yes (Hospitalization)
  Sender: FDA-Public Use
  Company Number: PHHY2014IT009644

PATIENT
  Sex: Female

DRUGS (6)
  1. AMOXICILLIN + CLAVULANATE POTASSIUM [Suspect]
     Indication: COUGH
     Dosage: 2 DF, QD
     Route: 048
     Dates: start: 20131209
  2. COUMADINE [Suspect]
     Dosage: 1 DF, QD
     Route: 048
     Dates: start: 20100101
  3. TIARTAN [Concomitant]
  4. RYTMONORM [Concomitant]
  5. EUTIROX [Concomitant]
  6. LANSOPRAZOLE [Concomitant]

REACTIONS (1)
  - Melaena [Recovering/Resolving]
